FAERS Safety Report 7580293-2 (Version None)
Quarter: 2011Q2

REPORT INFORMATION
  Report Type: 
  Country: None (occurrence: None)
  Receive Date: 20110629
  Receipt Date: 20090930
  Transmission Date: 20111010
  Serious: Yes (Death, Other)
  Sender: FDA-Public Use
  Company Number: US-BAYER-200934776NA

PATIENT
  Age: 74 Year
  Sex: Male
  Weight: 98 kg

DRUGS (15)
  1. LIDOCAINE [Concomitant]
     Dosage: 1MCG/MIN
     Route: 042
     Dates: start: 20060323, end: 20060323
  2. CAPTOPRIL [Concomitant]
     Dosage: 5 MG, BID
     Route: 048
  3. LOVASTATIN [Concomitant]
     Dosage: 10 MG, QD
     Route: 048
  4. TRASYLOL [Suspect]
     Indication: PRODUCT USED FOR UNKNOWN INDICATION
     Dosage: 400 ML
     Route: 042
     Dates: start: 20060323, end: 20060323
  5. LASIX [Concomitant]
     Dosage: 20 MG, QD
  6. DOBUTAMINE HCL [Concomitant]
     Dosage: 5MCG/KG/MIN
     Route: 042
     Dates: start: 20060323
  7. ACETYLSALICYLIC ACID SRT [Concomitant]
     Dosage: 81 MG, QD
     Route: 048
  8. SAW PALMETTO [Concomitant]
     Dosage: 320 MG, QD
     Route: 048
  9. CAPTOPRIL [Concomitant]
     Dosage: 75 MG, BID
  10. VISIPAQUE [Concomitant]
     Dosage: 125 ML, UNK
     Dates: start: 20060101
  11. FENTANYL [Concomitant]
     Dosage: 250MCG X2
     Route: 042
     Dates: start: 20060323, end: 20060323
  12. FENTANYL [Concomitant]
     Dosage: 150MCG X1
     Route: 042
     Dates: start: 20060323, end: 20060323
  13. ALLOPURINOL [Concomitant]
     Dosage: 300 MG, QD
     Route: 048
  14. FENTANYL [Concomitant]
     Dosage: 100MCG X1
     Route: 042
     Dates: start: 20060323, end: 20060323
  15. HEPARIN [Concomitant]
     Dosage: 1000 UNITS
     Route: 042
     Dates: start: 20060323, end: 20060323

REACTIONS (15)
  - PAIN [None]
  - DISABILITY [None]
  - DEATH [None]
  - EMOTIONAL DISTRESS [None]
  - MULTI-ORGAN FAILURE [None]
  - INJURY [None]
  - NERVOUSNESS [None]
  - RENAL FAILURE [None]
  - ANXIETY [None]
  - FEAR OF DEATH [None]
  - UNEVALUABLE EVENT [None]
  - RENAL INJURY [None]
  - DEPRESSION [None]
  - ANHEDONIA [None]
  - FEAR [None]
